FAERS Safety Report 10339721 (Version 2)
Quarter: 2014Q1

REPORT INFORMATION
  Report Type: Spontaneous
  Country: US (occurrence: None)
  Receive Date: 20120817
  Receipt Date: 20130815
  Transmission Date: 20141002
  Serious: Yes (Other)
  Sender: FDA-Public Use
  Company Number: ADR-2012-00103

PATIENT
  Sex: Female

DRUGS (2)
  1. BACLOFEN INTRATHECAL (BACLOFEN INJECTION) 1000 MCG/ML [Suspect]
     Indication: MUSCLE SPASTICITY
     Route: 037
  2. BACLOFEN INTRATHECAL (BACLOFEN INJECTION) 1000 MCG/ML [Suspect]
     Indication: MUSCLE SPASTICITY
     Route: 037

REACTIONS (6)
  - Muscle spasticity [None]
  - Muscle tightness [None]
  - Drug withdrawal syndrome [None]
  - Pain [None]
  - Hypotonia [None]
  - Lethargy [None]
